FAERS Safety Report 21765467 (Version 2)
Quarter: 2023Q1

REPORT INFORMATION
  Report Type: Report from Study
  Country: DK (occurrence: DK)
  Receive Date: 20221222
  Receipt Date: 20230208
  Transmission Date: 20230417
  Serious: Yes (Hospitalization, Other)
  Sender: FDA-Public Use
  Company Number: DK-TAKEDA-2022TUS099922

PATIENT
  Age: 52 Year
  Sex: Female

DRUGS (46)
  1. TEDUGLUTIDE [Suspect]
     Active Substance: TEDUGLUTIDE
     Indication: Short-bowel syndrome
     Dosage: UNK
     Route: 042
  2. TEDUGLUTIDE [Suspect]
     Active Substance: TEDUGLUTIDE
     Indication: Short-bowel syndrome
     Dosage: UNK
     Route: 042
  3. TEDUGLUTIDE [Suspect]
     Active Substance: TEDUGLUTIDE
     Indication: Short-bowel syndrome
     Dosage: UNK
     Route: 042
  4. TEDUGLUTIDE [Suspect]
     Active Substance: TEDUGLUTIDE
     Indication: Short-bowel syndrome
     Dosage: UNK
     Route: 042
  5. ZOPICLONE [Concomitant]
     Active Substance: ZOPICLONE
     Indication: Insomnia
     Dosage: 3.75 MILLIGRAM
     Route: 048
     Dates: start: 20220711, end: 20220807
  6. PIPERACILLIN AND TAZOBACTAM [Concomitant]
     Active Substance: PIPERACILLIN SODIUM\TAZOBACTAM SODIUM
     Indication: Vascular device infection
     Dosage: 4 GRAM, TID
     Route: 042
     Dates: start: 20170729, end: 20170801
  7. PIPERACILLIN AND TAZOBACTAM [Concomitant]
     Active Substance: PIPERACILLIN SODIUM\TAZOBACTAM SODIUM
     Indication: Infection
     Dosage: 4000 MILLIGRAM, QD
     Route: 042
     Dates: start: 20190909, end: 20190912
  8. PIPERACILLIN AND TAZOBACTAM [Concomitant]
     Active Substance: PIPERACILLIN SODIUM\TAZOBACTAM SODIUM
     Indication: Device related sepsis
     Dosage: 4000 MILLIGRAM, QID
     Route: 042
     Dates: start: 20220505, end: 20220513
  9. PIPERACILLIN AND TAZOBACTAM [Concomitant]
     Active Substance: PIPERACILLIN SODIUM\TAZOBACTAM SODIUM
     Indication: Device related sepsis
     Dosage: UNK
     Route: 042
     Dates: start: 20170309, end: 20170316
  10. VANCOMYCIN [Concomitant]
     Active Substance: VANCOMYCIN
     Indication: Vascular device infection
     Dosage: 1000 MILLIGRAM, BID
     Route: 042
     Dates: start: 20170402, end: 20170406
  11. VANCOMYCIN [Concomitant]
     Active Substance: VANCOMYCIN
     Indication: Device related sepsis
     Dosage: 1000 MILLIGRAM, BID
     Route: 042
     Dates: start: 20190902, end: 20190905
  12. VANCOMYCIN [Concomitant]
     Active Substance: VANCOMYCIN
     Dosage: 1000 MILLIGRAM, BID
     Route: 042
     Dates: start: 20220204, end: 20220208
  13. VANCOMYCIN [Concomitant]
     Active Substance: VANCOMYCIN
     Dosage: 1000 MILLIGRAM, BID
     Route: 042
     Dates: start: 20220505, end: 20220506
  14. CEFUROXIME [Concomitant]
     Active Substance: CEFUROXIME
     Indication: Vascular device infection
     Dosage: 1500 MILLIGRAM, TID
     Route: 042
     Dates: start: 20170402, end: 20170406
  15. CEFUROXIME [Concomitant]
     Active Substance: CEFUROXIME
     Indication: Device related sepsis
     Dosage: 1500 MILLIGRAM, BID
     Route: 042
     Dates: start: 20170801, end: 20170801
  16. CEFUROXIME [Concomitant]
     Active Substance: CEFUROXIME
     Indication: Infection
     Dosage: 1500 MILLIGRAM, TID
     Route: 042
     Dates: start: 20190902, end: 20190909
  17. CEFUROXIME [Concomitant]
     Active Substance: CEFUROXIME
     Indication: Device related sepsis
     Dosage: 1500 MILLIGRAM, TID
     Route: 042
     Dates: start: 20220204, end: 20220213
  18. CEFUROXIME [Concomitant]
     Active Substance: CEFUROXIME
     Dosage: 1500 MILLIGRAM, TID
     Route: 042
     Dates: start: 20220505, end: 20220505
  19. MORPHINE [Concomitant]
     Active Substance: MORPHINE
     Indication: Pain
     Dosage: 10 MILLIGRAM, TID
     Route: 048
  20. ACETAMINOPHEN [Concomitant]
     Active Substance: ACETAMINOPHEN
     Indication: Pain
     Dosage: 1000 MILLIGRAM, QID
     Route: 048
  21. ZOPICLONE [Concomitant]
     Active Substance: ZOPICLONE
     Indication: Hypnotherapy
     Dosage: 3.75 MILLIGRAM
     Route: 048
  22. CALCIUM\VITAMIN D [Concomitant]
     Active Substance: CALCIUM\VITAMIN D
     Indication: Supplementation therapy
     Dosage: 1 DOSAGE FORM, BID
     Route: 048
  23. ETHINYL ESTRADIOL\GESTODENE [Concomitant]
     Active Substance: ETHINYL ESTRADIOL\GESTODENE
     Indication: Contraception
     Dosage: 75 MILLIGRAM, QD
     Route: 048
  24. NEXIUM [Concomitant]
     Active Substance: ESOMEPRAZOLE MAGNESIUM
     Dosage: 80 MILLIGRAM, BID
     Route: 042
     Dates: start: 200604, end: 20180617
  25. ACLASTA [Concomitant]
     Active Substance: ZOLEDRONIC ACID
     Indication: Osteoporosis
     Dosage: 5 MILLIGRAM
     Route: 042
     Dates: start: 2012
  26. SUMATRIPTAN [Concomitant]
     Active Substance: SUMATRIPTAN
     Indication: Migraine
     Dosage: 50 MILLIGRAM
     Route: 048
     Dates: start: 201611, end: 201709
  27. CIPROFLOXACIN [Concomitant]
     Active Substance: CIPROFLOXACIN
     Indication: Device related sepsis
     Dosage: 400 MILLIGRAM, BID
     Route: 042
     Dates: start: 20170402, end: 20170406
  28. CIPROFLOXACIN [Concomitant]
     Active Substance: CIPROFLOXACIN
     Indication: Infection
     Dosage: 400 MILLIGRAM, BID
     Route: 042
     Dates: start: 20170801, end: 20170808
  29. CIPROFLOXACIN [Concomitant]
     Active Substance: CIPROFLOXACIN
     Indication: Device related sepsis
     Dosage: 400 MILLIGRAM, BID
     Route: 042
     Dates: start: 20190902, end: 20190909
  30. CIPROFLOXACIN [Concomitant]
     Active Substance: CIPROFLOXACIN
     Indication: Vascular device infection
     Dosage: 400 MILLIGRAM, BID
     Route: 042
     Dates: start: 20220204, end: 20220208
  31. CIPROFLOXACIN [Concomitant]
     Active Substance: CIPROFLOXACIN
     Dosage: 400 MILLIGRAM, BID
     Route: 042
     Dates: start: 20220505, end: 20220506
  32. MEROPENEM [Concomitant]
     Active Substance: MEROPENEM
     Indication: Device related sepsis
     Dosage: 1000 MILLIGRAM, TID
     Route: 042
     Dates: start: 20170406, end: 20170409
  33. GENTAMICIN [Concomitant]
     Active Substance: GENTAMICIN
     Indication: Infection
     Dosage: UNK
     Route: 042
     Dates: start: 20170729, end: 20170801
  34. INNOHEP [Concomitant]
     Active Substance: TINZAPARIN SODIUM
     Indication: Thrombosis prophylaxis
     Dosage: 14000 INTERNATIONAL UNIT, QD
     Route: 030
     Dates: start: 20170729, end: 20170801
  35. METHOTREXATE [Concomitant]
     Active Substance: METHOTREXATE
     Indication: Sacroiliitis
     Dosage: 25 MILLIGRAM
     Route: 058
     Dates: start: 20181219
  36. FOLIC ACID [Concomitant]
     Active Substance: FOLIC ACID
     Indication: Sacroiliitis
     Dosage: 5 MILLIGRAM
     Route: 048
     Dates: start: 20181219
  37. GLYCOSAMINOGLYCANS [Concomitant]
     Active Substance: GLYCOSAMINOGLYCANS
     Indication: Superficial vein thrombosis
     Dosage: UNK UNK, QD
     Route: 062
     Dates: start: 20170825, end: 20170904
  38. PROPOFOL [Concomitant]
     Active Substance: PROPOFOL
     Indication: Colonoscopy
     Dosage: 230 MILLIGRAM
     Route: 042
     Dates: start: 20180919, end: 20180919
  39. MORPHINE SULFATE [Concomitant]
     Active Substance: MORPHINE SULFATE
     Indication: Pain
     Dosage: 20 MILLIGRAM, BID
     Route: 048
     Dates: start: 20190507, end: 20191121
  40. MORPHINE SULFATE [Concomitant]
     Active Substance: MORPHINE SULFATE
     Dosage: 30 MILLIGRAM, BID
     Route: 048
     Dates: start: 20191121
  41. ESOMEPRAZOLE [Concomitant]
     Active Substance: ESOMEPRAZOLE
     Dosage: 5 MILLILITER, BID
     Route: 042
     Dates: start: 20180618
  42. ETHINYL ESTRADIOL\LEVONORGESTREL [Concomitant]
     Active Substance: ETHINYL ESTRADIOL\LEVONORGESTREL
     Indication: Contraception
     Dosage: UNK UNK, QD
     Route: 048
     Dates: start: 20150427
  43. Morfin [Concomitant]
     Indication: Pain
     Dosage: 10 MILLIGRAM
     Route: 048
     Dates: start: 20190129
  44. JERN C [Concomitant]
     Indication: Supplementation therapy
     Dosage: UNK UNK, QD
     Route: 048
     Dates: start: 20190617
  45. POTASSIUM CHLORIDE [Concomitant]
     Active Substance: POTASSIUM CHLORIDE
     Indication: Hypokalaemic syndrome
     Dosage: 1500 MILLIGRAM, QD
     Route: 048
     Dates: start: 20190902, end: 20190909
  46. ONDANSETRON [Concomitant]
     Active Substance: ONDANSETRON
     Indication: Nausea
     Dosage: 4 MILLIGRAM
     Route: 042
     Dates: start: 20210429, end: 20210430

REACTIONS (1)
  - Vascular device infection [Recovered/Resolved]

NARRATIVE: CASE EVENT DATE: 20220504
